FAERS Safety Report 5752835-0 (Version None)
Quarter: 2008Q2

REPORT INFORMATION
  Report Type: 
  Country: None (occurrence: None)
  Receive Date: 20080529
  Receipt Date: 20080523
  Transmission Date: 20081010
  Serious: Yes (Hospitalization)
  Sender: FDA-Public Use
  Company Number: US-GILEAD-2008-0016566

PATIENT
  Sex: Male

DRUGS (1)
  1. LETAIRIS [Suspect]
     Indication: PULMONARY ARTERIAL HYPERTENSION
     Dates: start: 20080502, end: 20080506

REACTIONS (5)
  - CHRONIC OBSTRUCTIVE PULMONARY DISEASE [None]
  - CONFUSIONAL STATE [None]
  - DYSPNOEA [None]
  - HYPOTENSION [None]
  - HYPOXIA [None]
